FAERS Safety Report 23236542 (Version 3)
Quarter: 2024Q1

REPORT INFORMATION
  Report Type: Spontaneous
  Country: JP (occurrence: JP)
  Receive Date: 20231128
  Receipt Date: 20240215
  Transmission Date: 20240410
  Serious: Yes (Other)
  Sender: FDA-Public Use
  Company Number: JP-002147023-NVSJ2023JP016716

PATIENT
  Weight: 1.7 kg

DRUGS (9)
  1. EVEROLIMUS [Suspect]
     Active Substance: EVEROLIMUS
     Indication: Tuberous sclerosis complex
     Dosage: 0.1 MG, DAILY
     Route: 048
  2. EVEROLIMUS [Suspect]
     Active Substance: EVEROLIMUS
     Indication: Rhabdomyoma
     Dosage: 0.05 MG, DAILY
     Route: 048
  3. EVEROLIMUS [Suspect]
     Active Substance: EVEROLIMUS
     Dosage: 0.03 MG, EVERY OTHER DAY
     Route: 048
  4. EVEROLIMUS [Suspect]
     Active Substance: EVEROLIMUS
     Dosage: 0.04 MG, EVERY OTHER DAY
     Route: 048
  5. EVEROLIMUS [Suspect]
     Active Substance: EVEROLIMUS
     Dosage: 0.04 MG, DAILY
     Route: 048
  6. EVEROLIMUS [Suspect]
     Active Substance: EVEROLIMUS
     Dosage: 0.05 MG, DAILY
     Route: 048
  7. EVEROLIMUS [Suspect]
     Active Substance: EVEROLIMUS
     Dosage: 0.06 MG, DAILY
     Route: 048
  8. EVEROLIMUS [Suspect]
     Active Substance: EVEROLIMUS
     Dosage: 0.08 MG, DAILY
     Route: 048
  9. EVEROLIMUS [Suspect]
     Active Substance: EVEROLIMUS
     Dosage: 0.04 MG, DAILY
     Route: 048

REACTIONS (2)
  - Neonatal hyperglycaemia [Recovering/Resolving]
  - Off label use [Unknown]
